FAERS Safety Report 8845200 (Version 1)
Quarter: 2012Q4

REPORT INFORMATION
  Report Type: Spontaneous
  Country: JP (occurrence: None)
  Receive Date: 20121015
  Receipt Date: 20121015
  Transmission Date: 20130627
  Serious: Yes (Other)
  Sender: FDA-Public Use
  Company Number: JP-2012-16511

PATIENT
  Age: 92 Year
  Sex: Female
  Weight: 30 kg

DRUGS (6)
  1. SAMSCA (TOLVAPTAN) TABLET [Suspect]
     Indication: FLUID RETENTION
     Dosage: 7.5 Mg milligram(s), qam, Oral
     Route: 048
     Dates: start: 20120809
  2. TANATRIL (IMIDAPRIL HYDROCHLORIDE) [Concomitant]
  3. ALDACTONE A (SPIRONOLACTONE) [Concomitant]
  4. PIMOBENDAN (PIMOBENDAN) [Concomitant]
  5. WARFARIN (WARFARIN SODIUM) [Concomitant]
  6. PARIET (RABEPRAZOLE SODIUM) [Concomitant]

REACTIONS (1)
  - Blood urea increased [None]
